FAERS Safety Report 6780873-8 (Version None)
Quarter: 2010Q2

REPORT INFORMATION
  Report Type: 
  Country: None (occurrence: None)
  Receive Date: 20100615
  Receipt Date: 20100531
  Transmission Date: 20101027
  Serious: Yes (Death, Hospitalization)
  Sender: FDA-Public Use
  Company Number: 2010002198

PATIENT
  Age: 50 Year
  Sex: Female

DRUGS (1)
  1. TARCEVA [Suspect]
     Indication: MALIGNANT SPLENIC NEOPLASM
     Dosage: (150 MG,QD), ORAL
     Route: 048

REACTIONS (3)
  - BACK PAIN [None]
  - MALIGNANT NEOPLASM PROGRESSION [None]
  - MALIGNANT SPLENIC NEOPLASM [None]
